FAERS Safety Report 7819768-7 (Version None)
Quarter: 2011Q4

REPORT INFORMATION
  Report Type: 
  Country: None (occurrence: None)
  Receive Date: 20111018
  Receipt Date: 20110610
  Transmission Date: 20120403
  Serious: No
  Sender: FDA-Public Use
  Company Number: US-ASTRAZENECA-2011SE35754

PATIENT
  Age: 38 Year
  Sex: Female
  Weight: 52.2 kg

DRUGS (2)
  1. PROAIR HFA [Concomitant]
  2. SYMBICORT [Suspect]
     Indication: ASTHMA
     Dosage: 160/4.5MG 2PUFFS BID
     Route: 055
     Dates: start: 20110201

REACTIONS (5)
  - PAROSMIA [None]
  - TINNITUS [None]
  - COUGH [None]
  - GASTROOESOPHAGEAL REFLUX DISEASE [None]
  - TREMOR [None]
